FAERS Safety Report 5660954-2 (Version None)
Quarter: 2008Q1

REPORT INFORMATION
  Report Type: 
  Country: None (occurrence: None)
  Receive Date: 20080311
  Receipt Date: 20080228
  Transmission Date: 20080703
  Serious: Yes (Disabling, Other)
  Sender: FDA-Public Use
  Company Number: IE-PFIZER INC-2007105212

PATIENT
  Age: 58 Year
  Sex: Male
  Weight: 98 kg

DRUGS (6)
  1. CHANTIX [Suspect]
     Indication: SMOKING CESSATION THERAPY
     Route: 048
  2. VENTOLIN [Concomitant]
     Route: 055
  3. CARDURA [Concomitant]
     Indication: HYPERTENSION
     Dosage: DAILY DOSE:4MG
     Route: 048
     Dates: start: 20060401, end: 20070528
  4. FRUMIL [Concomitant]
     Indication: HYPERTENSION
     Dosage: DAILY DOSE:20MG
     Route: 048
     Dates: start: 20070401, end: 20070528
  5. XENICAL [Concomitant]
     Route: 048
  6. NEXIUM [Concomitant]

REACTIONS (12)
  - BALANCE DISORDER [None]
  - DRUG LEVEL CHANGED [None]
  - DYSKINESIA [None]
  - FALL [None]
  - GAIT DISTURBANCE [None]
  - HEAD TITUBATION [None]
  - HEADACHE [None]
  - NERVOUS SYSTEM DISORDER [None]
  - PAIN [None]
  - PARKINSONISM [None]
  - TREMOR [None]
  - UNEVALUABLE EVENT [None]
